FAERS Safety Report 13541347 (Version 1)
Quarter: 2017Q2

REPORT INFORMATION
  Report Type: Spontaneous
  Country: US (occurrence: US)
  Receive Date: 20170512
  Receipt Date: 20170512
  Transmission Date: 20170830
  Serious: No
  Sender: FDA-Public Use
  Company Number: US-SA-2016SA097678

PATIENT
  Age: 69 Year
  Sex: Female

DRUGS (9)
  1. HUMALOG [Concomitant]
     Active Substance: INSULIN LISPRO
     Route: 065
  2. METFORMIN [Concomitant]
     Active Substance: METFORMIN HYDROCHLORIDE
  3. APIDRA [Suspect]
     Active Substance: INSULIN GLULISINE
     Indication: TYPE 2 DIABETES MELLITUS
     Dosage: DOSE:20 UNIT(S)
     Route: 065
     Dates: start: 2015
  4. SOLOSTAR [Concomitant]
     Active Substance: DEVICE
  5. NOVOLOG [Concomitant]
     Active Substance: INSULIN ASPART
     Route: 065
  6. APIDRA [Suspect]
     Active Substance: INSULIN GLULISINE
     Indication: TYPE 2 DIABETES MELLITUS
     Route: 065
     Dates: end: 2016
  7. LANTUS SOLOSTAR [Concomitant]
     Active Substance: INSULIN GLARGINE
     Dosage: SINCE THE END (MAYBE SEPTEMBER) 2014 OR EARLY 2015 DOSE:55 UNIT(S)
  8. INSULIN [Concomitant]
     Active Substance: INSULIN NOS
     Dosage: DOSE:12 UNIT(S)
     Route: 065
  9. JANUVIA [Concomitant]
     Active Substance: SITAGLIPTIN PHOSPHATE
     Route: 065

REACTIONS (8)
  - Blood glucose increased [Recovering/Resolving]
  - Asthenia [Unknown]
  - Oedema peripheral [Unknown]
  - Pain in extremity [Unknown]
  - Fatigue [Unknown]
  - Erythema [Unknown]
  - Blood glucose decreased [Unknown]
  - Rash [Recovered/Resolved]

NARRATIVE: CASE EVENT DATE: 2015
